FAERS Safety Report 18517294 (Version 1)
Quarter: 2020Q4

REPORT INFORMATION
  Report Type: Spontaneous
  Country: FR (occurrence: FR)
  Receive Date: 20201118
  Receipt Date: 20201118
  Transmission Date: 20210114
  Serious: Yes (Hospitalization)
  Sender: FDA-Public Use
  Company Number: FR-MYLANLABS-2014M1012336

PATIENT
  Sex: Female

DRUGS (5)
  1. REMIFENTANIL MYLAN [Suspect]
     Active Substance: REMIFENTANIL
     Indication: ANAESTHESIA
     Dosage: UNK UNK, ONCE
     Route: 042
     Dates: start: 20140225, end: 20140225
  2. SUPRANE [Suspect]
     Active Substance: DESFLURANE
     Indication: ANAESTHESIA
     Dosage: UNK
     Route: 055
     Dates: start: 20140225, end: 20140225
  3. PROPOFOL FRESENIUS [Suspect]
     Active Substance: PROPOFOL
     Indication: INDUCTION OF ANAESTHESIA
     Dosage: 350 MG, ONCE
     Route: 042
     Dates: start: 20140225, end: 20140225
  4. LIDOCAINE AGUETTANT [Suspect]
     Active Substance: LIDOCAINE
     Indication: INDUCTION OF ANAESTHESIA
     Dosage: 30 MG, QD
     Route: 042
     Dates: start: 20140225, end: 20140225
  5. EPHEDRINE RENAUDIN [Concomitant]
     Active Substance: EPHEDRINE HYDROCHLORIDE
     Indication: INDUCTION OF ANAESTHESIA
     Dosage: UNK
     Route: 042
     Dates: start: 20140225, end: 20140225

REACTIONS (1)
  - Anaphylactic shock [Recovered/Resolved]

NARRATIVE: CASE EVENT DATE: 20140225
